FAERS Safety Report 6472705-2 (Version None)
Quarter: 2009Q4

REPORT INFORMATION
  Report Type: 
  Country: None (occurrence: None)
  Receive Date: 20091201
  Receipt Date: 20091123
  Transmission Date: 20100525
  Serious: Yes (Other)
  Sender: FDA-Public Use
  Company Number: 2009SP037860

PATIENT

DRUGS (1)
  1. ZISPIN (MIRTAZAPINE) (MIRTAZAPINE) [Suspect]
     Indication: DRUG USE FOR UNKNOWN INDICATION

REACTIONS (1)
  - RENAL FUNCTION TEST ABNORMAL [None]
